FAERS Safety Report 7103836-1 (Version None)
Quarter: 2010Q4

REPORT INFORMATION
  Report Type: 
  Country: None (occurrence: None)
  Receive Date: 20101115
  Receipt Date: 20101108
  Transmission Date: 20110411
  Serious: Yes (Hospitalization)
  Sender: FDA-Public Use
  Company Number: JP-PFIZER INC-2010139116

PATIENT
  Age: 64 Year
  Sex: Female
  Weight: 52.3 kg

DRUGS (4)
  1. SUNITINIB MALATE [Suspect]
     Indication: PANCREATIC NEUROENDOCRINE TUMOUR
     Dosage: 37.5 MG, 1X/DAY
     Route: 048
     Dates: start: 20101019, end: 20101102
  2. ALOSENN [Concomitant]
  3. GASTER [Concomitant]
  4. LIVALO [Concomitant]

REACTIONS (1)
  - CHOLECYSTITIS ACUTE [None]
